FAERS Safety Report 7796244-1 (Version None)
Quarter: 2011Q4

REPORT INFORMATION
  Report Type: 
  Country: None (occurrence: None)
  Receive Date: 20111004
  Receipt Date: 20110928
  Transmission Date: 20120403
  Serious: Yes (Hospitalization, Disabling, Other)
  Sender: FDA-Public Use
  Company Number: US-MERCK-1105USA03424

PATIENT
  Age: 62 Year
  Sex: Female
  Weight: 63 kg

DRUGS (9)
  1. FOSAMAX [Suspect]
     Indication: OSTEOPENIA
     Route: 048
     Dates: start: 20030101, end: 20090201
  2. FOSAMAX PLUS D [Suspect]
     Indication: OSTEOPOROSIS
     Route: 048
     Dates: start: 20060124
  3. FOSAMAX PLUS D [Suspect]
     Indication: OSTEOPENIA
     Route: 048
     Dates: start: 20060124
  4. ALENDRONATE SODIUM [Suspect]
     Indication: OSTEOPOROSIS
     Route: 048
     Dates: start: 20090508, end: 20100201
  5. BONIVA [Suspect]
     Indication: OSTEOPOROSIS
     Route: 048
     Dates: start: 20100201, end: 20101201
  6. HORMONES (UNSPECIFIED) [Concomitant]
     Route: 065
     Dates: start: 20010101, end: 20090101
  7. ALENDRONATE SODIUM [Suspect]
     Indication: OSTEOPENIA
     Route: 048
     Dates: start: 20090508, end: 20100201
  8. FOSAMAX [Suspect]
     Indication: OSTEOPOROSIS
     Route: 048
     Dates: start: 20030101, end: 20090201
  9. BONIVA [Suspect]
     Indication: OSTEOPENIA
     Route: 048
     Dates: start: 20100201, end: 20101201

REACTIONS (26)
  - FEMUR FRACTURE [None]
  - ARTHRITIS [None]
  - GASTRIC DISORDER [None]
  - TINNITUS [None]
  - EXTERNAL EAR DISORDER [None]
  - TOOTH DISORDER [None]
  - HOT FLUSH [None]
  - DEPRESSION [None]
  - SCOTOMA [None]
  - DIARRHOEA [None]
  - EUSTACHIAN TUBE DISORDER [None]
  - OSTEOARTHRITIS [None]
  - NAUSEA [None]
  - TONSILLAR DISORDER [None]
  - ANXIETY [None]
  - INFLAMMATORY BOWEL DISEASE [None]
  - STRESS [None]
  - OEDEMA [None]
  - CELLULITIS [None]
  - DRY SKIN [None]
  - FALL [None]
  - LOW TURNOVER OSTEOPATHY [None]
  - STRESS FRACTURE [None]
  - CHEST PAIN [None]
  - INSOMNIA [None]
  - BLOOD CHOLESTEROL INCREASED [None]
